FAERS Safety Report 14699202 (Version 8)
Quarter: 2021Q1

REPORT INFORMATION
  Report Type: Spontaneous
  Country: FR (occurrence: FR)
  Receive Date: 20180330
  Receipt Date: 20210304
  Transmission Date: 20210419
  Serious: Yes (Death, Life-Threatening, Hospitalization, Other)
  Sender: FDA-Public Use
  Company Number: FR-AUROBINDO-AUR-APL-2018-017316

PATIENT
  Age: 70 Year
  Sex: Male

DRUGS (5)
  1. TRAMADOL. [Suspect]
     Active Substance: TRAMADOL
     Dosage: 50 MILLIGRAM, UNK
     Route: 065
     Dates: start: 20170316, end: 20170316
  2. NIVOLUMAB [Suspect]
     Active Substance: NIVOLUMAB
     Indication: LUNG NEOPLASM MALIGNANT
     Dosage: 214 MILLIGRAM, 15 DAYS
     Route: 042
     Dates: start: 20170302, end: 20170821
  3. TRAMADOL. [Suspect]
     Active Substance: TRAMADOL
     Indication: TENDON DISORDER
     Dosage: 100 MILLIGRAM, UNK
     Route: 065
     Dates: start: 20170315
  4. NIVOLUMAB [Suspect]
     Active Substance: NIVOLUMAB
     Dosage: 276 MILLIGRAM EVERY 15 DAYS
     Route: 042
     Dates: start: 20170302, end: 20170821
  5. OROZAMUDOL [Concomitant]
     Active Substance: TRAMADOL
     Indication: PAIN
     Dosage: 50 UNK
     Route: 065
     Dates: start: 20170316

REACTIONS (14)
  - Decreased appetite [Unknown]
  - Asthenia [Not Recovered/Not Resolved]
  - Somnolence [Unknown]
  - Metastases to central nervous system [Unknown]
  - Malignant neoplasm progression [Fatal]
  - Tendon disorder [Not Recovered/Not Resolved]
  - Malaise [Recovered/Resolved]
  - General physical health deterioration [Fatal]
  - Condition aggravated [Unknown]
  - Metastases to bone [Unknown]
  - Prescribed overdose [Unknown]
  - Gait disturbance [Unknown]
  - Syncope [Recovered/Resolved]
  - Cognitive disorder [Unknown]

NARRATIVE: CASE EVENT DATE: 20170306
